FAERS Safety Report 15899657 (Version 2)
Quarter: 2019Q1

REPORT INFORMATION
  Report Type: Spontaneous
  Country: US (occurrence: US)
  Receive Date: 20190201
  Receipt Date: 20190211
  Transmission Date: 20190417
  Serious: No
  Sender: FDA-Public Use
  Company Number: US-PFIZER INC-2019031525

PATIENT
  Age: 67 Year
  Sex: Male

DRUGS (1)
  1. IBRANCE [Suspect]
     Active Substance: PALBOCICLIB
     Indication: SQUAMOUS CELL CARCINOMA
     Dosage: 125 MG, UNK

REACTIONS (3)
  - Product use in unapproved indication [Unknown]
  - Tracheal disorder [Unknown]
  - Speech disorder [Unknown]
